FAERS Safety Report 4679306-7 (Version None)
Quarter: 2005Q2

REPORT INFORMATION
  Report Type: 
  Country: None (occurrence: None)
  Receive Date: 20050531
  Receipt Date: 20050519
  Transmission Date: 20051028
  Serious: Yes (Life-Threatening)
  Sender: FDA-Public Use
  Company Number: 11176

PATIENT
  Age: 42 Year
  Sex: Female

DRUGS (4)
  1. PACLITAXEL [Suspect]
     Indication: OVARIAN CANCER
     Dosage: 311 G IV
     Route: 042
     Dates: start: 20040907, end: 20041109
  2. CARBOPLATIN [Concomitant]
  3. ZOFRAN [Concomitant]
  4. KEVETRIL [Concomitant]

REACTIONS (6)
  - CARDIAC ARREST [None]
  - CIRCULATORY COLLAPSE [None]
  - HYPERSENSITIVITY [None]
  - HYPOTENSION [None]
  - LOSS OF CONSCIOUSNESS [None]
  - RESPIRATORY DISORDER [None]
